FAERS Safety Report 5168009-0 (Version None)
Quarter: 2006Q4

REPORT INFORMATION
  Report Type: 
  Country: None (occurrence: None)
  Receive Date: 20061208
  Receipt Date: 20060131
  Transmission Date: 20070319
  Serious: No
  Sender: FDA-Public Use
  Company Number: US-GLAXOSMITHKLINE-A0591684A

PATIENT
  Age: 86 Year
  Sex: Male
  Weight: 86.4 kg

DRUGS (4)
  1. AVANDAMET [Suspect]
     Dosage: .5TAB TWICE PER DAY
     Route: 048
  2. NEXIUM [Concomitant]
  3. GLYBURIDE [Concomitant]
  4. FLOMAX [Concomitant]

REACTIONS (3)
  - BREAST ENLARGEMENT [None]
  - BREAST TENDERNESS [None]
  - NIPPLE PAIN [None]
